FAERS Safety Report 4943566-5 (Version None)
Quarter: 2006Q1

REPORT INFORMATION
  Report Type: 
  Country: None (occurrence: None)
  Receive Date: 20060314
  Receipt Date: 20060307
  Transmission Date: 20060701
  Serious: Yes (Hospitalization)
  Sender: FDA-Public Use
  Company Number: NL-BOEHRINGER INGELHEIM PHARMACEUTICALS, INC.-2006-NL-00055NL

PATIENT
  Sex: Male
  Weight: 73 kg

DRUGS (5)
  1. SPIRIVA [Suspect]
     Indication: CHRONIC OBSTRUCTIVE PULMONARY DISEASE
     Dosage: 1X1
     Dates: start: 20060210
  2. ACIDUM ACETYLSALICYLICUM CARDIO TABLET 80 MG [Concomitant]
     Dosage: 1X1
  3. METOPROLOL TARTRAS RETARD TABLET MGA 100 MG [Concomitant]
     Dosage: 1X1
  4. NITROLINGUAL OROMUCOSALE SPRAY 0,4 MG/DO FLAC 200DO [Concomitant]
     Dosage: AS NEEDED.
     Dates: start: 20050524, end: 20050524
  5. LIPITOR TABLET COATED 20 MG [Concomitant]
     Dosage: 1X1

REACTIONS (2)
  - CHEST PAIN [None]
  - MUSCLE SPASMS [None]
